FAERS Safety Report 7417513-0 (Version None)
Quarter: 2011Q2

REPORT INFORMATION
  Report Type: 
  Country: None (occurrence: None)
  Receive Date: 20110412
  Receipt Date: 20110412
  Transmission Date: 20111010
  Serious: Yes (Hospitalization)
  Sender: FDA-Public Use
  Company Number: None

PATIENT
  Sex: Male
  Weight: 29.9 kg

DRUGS (3)
  1. ETOPOSIDE [Suspect]
     Dosage: 1360 MG
  2. MELPHALAN [Suspect]
     Dosage: 210 MG
  3. CARBOPLATIN [Suspect]
     Dosage: 1700 MG

REACTIONS (15)
  - GRAND MAL CONVULSION [None]
  - RESPIRATORY DISTRESS [None]
  - BLOOD PRESSURE ABNORMAL [None]
  - WEIGHT INCREASED [None]
  - DISSEMINATED INTRAVASCULAR COAGULATION [None]
  - MUCOSAL INFLAMMATION [None]
  - DEVICE BREAKAGE [None]
  - HYPOTENSION [None]
  - RENAL FAILURE [None]
  - DIALYSIS [None]
  - VENOOCCLUSIVE LIVER DISEASE [None]
  - SOMNOLENCE [None]
  - RESPIRATORY FAILURE [None]
  - MENTAL STATUS CHANGES [None]
  - MOUTH HAEMORRHAGE [None]
